FAERS Safety Report 13720176 (Version 1)
Quarter: 2017Q3

REPORT INFORMATION
  Report Type: Other
  Country: DE (occurrence: DE)
  Receive Date: 20170706
  Receipt Date: 20170706
  Transmission Date: 20171127
  Serious: No
  Sender: FDA-Public Use
  Company Number: DE-LUPIN PHARMACEUTICALS INC.-E2B_00006689

PATIENT
  Age: 65 Year
  Sex: Female
  Weight: 62 kg

DRUGS (4)
  1. EZETROL [Suspect]
     Active Substance: EZETIMIBE
     Indication: LOW DENSITY LIPOPROTEIN INCREASED
     Dosage: 10 MG,UNK,UNKNOWN
     Route: 048
     Dates: start: 20150629, end: 20151105
  2. SIMVASTATIN. [Suspect]
     Active Substance: SIMVASTATIN
     Indication: LOW DENSITY LIPOPROTEIN INCREASED
     Dosage: 10 MG,UNK,UNKNOWN
     Route: 048
     Dates: start: 20151228, end: 20160201
  3. ATORVASTATIN [Suspect]
     Active Substance: ATORVASTATIN
     Indication: LOW DENSITY LIPOPROTEIN INCREASED
     Dosage: 10 MG,UNK,UNKNOWN
     Route: 048
     Dates: start: 20150518, end: 20150615
  4. ATORVASTATIN [Suspect]
     Active Substance: ATORVASTATIN
     Indication: LOW DENSITY LIPOPROTEIN INCREASED
     Dosage: 20 MG,UNK,UNKNOWN
     Route: 048
     Dates: start: 20141229, end: 20150518

REACTIONS (3)
  - Myalgia [Recovering/Resolving]
  - Blood creatine phosphokinase increased [Recovering/Resolving]
  - Drug intolerance [Recovering/Resolving]

NARRATIVE: CASE EVENT DATE: 20150518
